FAERS Safety Report 9536410 (Version 1)
Quarter: 2013Q2

REPORT INFORMATION
  Report Type: Spontaneous
  Country: US (occurrence: None)
  Receive Date: 20130507
  Receipt Date: 20130507
  Transmission Date: 20140414
  Serious: No
  Sender: FDA-Public Use
  Company Number: PHEH2012US024048

PATIENT
  Age: 15 Year
  Sex: Male

DRUGS (5)
  1. AFINITOR (RAD) [Suspect]
     Indication: BENIGN NEOPLASM
     Route: 048
     Dates: start: 20120324
  2. LAMICTAL (LAMOTRIGINE) [Concomitant]
  3. RISPERDAL (RISPERIDONE) [Concomitant]
  4. DIASTAT/01384601/ (ATROPA BELLADONNA TINCTURE, CHLOROFORM AND MORPHINE TINCTURE, KAOLIN, PECTIN, PHTHALYSULFATHIAZOLE, STREPTOMYCIN) [Concomitant]
  5. SEROQUEL (QUETIAPINE FUMARATE) [Concomitant]

REACTIONS (6)
  - Eating disorder [None]
  - Stomatitis [None]
  - Weight decreased [None]
  - Pain [None]
  - Pyrexia [None]
  - Blood potassium decreased [None]
